FAERS Safety Report 18362757 (Version 1)
Quarter: 2020Q4

REPORT INFORMATION
  Report Type: Spontaneous
  Country: US (occurrence: US)
  Receive Date: 20201008
  Receipt Date: 20201008
  Transmission Date: 20210114
  Serious: Yes (Hospitalization, Other)
  Sender: FDA-Public Use
  Company Number: US-GILEAD-2020-0498020

PATIENT
  Age: 62 Year
  Sex: Male
  Weight: 118 kg

DRUGS (6)
  1. AMLODIPINE [Concomitant]
     Active Substance: AMLODIPINE BESYLATE
     Dosage: UNK
     Dates: start: 20201005, end: 20201007
  2. ZINC. [Concomitant]
     Active Substance: ZINC
     Dosage: UNK
     Dates: start: 20201005, end: 20201007
  3. ENOXAPARIN [Concomitant]
     Active Substance: ENOXAPARIN
     Dosage: UNK
     Dates: start: 20201005, end: 20201007
  4. DEXAMETHASONE. [Concomitant]
     Active Substance: DEXAMETHASONE
     Dosage: UNK
     Dates: start: 20201005, end: 20201007
  5. REMDESIVIR. [Suspect]
     Active Substance: REMDESIVIR
     Indication: SARS-COV-2 TEST POSITIVE
     Dosage: 200 MG (LOADING DOSE)
     Route: 040
     Dates: start: 20201005, end: 20201005
  6. ASCORBIC ACID. [Concomitant]
     Active Substance: ASCORBIC ACID
     Dosage: UNK
     Dates: start: 20201005, end: 20201007

REACTIONS (2)
  - Dyspnoea [Recovered/Resolved]
  - Hyperhidrosis [Recovered/Resolved]

NARRATIVE: CASE EVENT DATE: 20201005
